FAERS Safety Report 19634774 (Version 1)
Quarter: 2021Q3

REPORT INFORMATION
  Report Type: Spontaneous
  Country: US (occurrence: US)
  Receive Date: 20210730
  Receipt Date: 20210730
  Transmission Date: 20211014
  Serious: Yes (Hospitalization)
  Sender: FDA-Public Use
  Company Number: None

PATIENT
  Age: 28 Year
  Sex: Female
  Weight: 82.6 kg

DRUGS (6)
  1. ONCASPAR [Suspect]
     Active Substance: PEGASPARGASE
     Dates: end: 20210706
  2. VINCRISTINE SULFATE. [Suspect]
     Active Substance: VINCRISTINE SULFATE
     Dates: end: 20210709
  3. DEXAMETHASONE. [Suspect]
     Active Substance: DEXAMETHASONE
     Dates: end: 20210709
  4. CYTARABINE. [Suspect]
     Active Substance: CYTARABINE
     Dates: end: 20210702
  5. DAUNORUBICIN [Suspect]
     Active Substance: DAUNORUBICIN
     Dates: end: 20210709
  6. METHOTREXATE. [Suspect]
     Active Substance: METHOTREXATE
     Dates: end: 20210709

REACTIONS (18)
  - Blood lactic acid decreased [None]
  - Ascites [None]
  - Blood fibrinogen decreased [None]
  - Asthenia [None]
  - Fibrin D dimer increased [None]
  - Blood triglycerides increased [None]
  - Gastrointestinal wall thickening [None]
  - Lipase increased [None]
  - Cholelithiasis [None]
  - Pancreatitis [None]
  - Neutropenia [None]
  - Nausea [None]
  - Pleural effusion [None]
  - Abdominal pain [None]
  - Vomiting [None]
  - Fatigue [None]
  - Hepatic steatosis [None]
  - Headache [None]

NARRATIVE: CASE EVENT DATE: 20210712
